FAERS Safety Report 11030883 (Version 1)
Quarter: 2015Q2

REPORT INFORMATION
  Report Type: Spontaneous
  Country: US (occurrence: US)
  Receive Date: 20150415
  Receipt Date: 20150415
  Transmission Date: 20150821
  Serious: No
  Sender: FDA-Public Use
  Company Number: US-ASTRAZENECA-2015SE32678

PATIENT
  Sex: Female
  Weight: 106.1 kg

DRUGS (5)
  1. CINNAMON SUPPLEMENT [Concomitant]
     Indication: DIABETES MELLITUS
  2. CALCIUM WITH VITAMIN D SUPPLEMENT [Concomitant]
     Indication: BONE DISORDER
  3. ARIMIDEX [Suspect]
     Active Substance: ANASTROZOLE
     Indication: BREAST CANCER
     Dosage: BRAND
     Route: 048
  4. NIACIN OTC [Concomitant]
     Indication: BLOOD CHOLESTEROL ABNORMAL
  5. ARIMIDEX [Suspect]
     Active Substance: ANASTROZOLE
     Indication: BREAST CANCER
     Route: 048
     Dates: start: 201311

REACTIONS (3)
  - Thyroid hormones increased [Unknown]
  - Blood cholesterol abnormal [Unknown]
  - Body height decreased [Unknown]
